FAERS Safety Report 8132477-2 (Version None)
Quarter: 2012Q1

REPORT INFORMATION
  Report Type: 
  Country: None (occurrence: None)
  Receive Date: 20120103
  Receipt Date: 20111019
  Transmission Date: 20120608
  Serious: No
  Sender: FDA-Public Use
  Company Number: AE-2011-001640

PATIENT
  Age: 52 Year
  Sex: Male
  Weight: 83.9154 kg

DRUGS (7)
  1. RIBAVIRIN [Concomitant]
  2. METAMUCIL (METAMUCIL ^PROCTER + GAMBLE^) [Concomitant]
  3. PAXIL [Concomitant]
  4. TRAMADOL HCL [Concomitant]
  5. INCIVEK [Suspect]
     Dosage: (3 IN 1 D)
     Dates: start: 20110819
  6. PEGINTERERON (PEGINTERFERON ALFA-2A) [Concomitant]
  7. EXCEDRIN (THOMAPYRIN N) [Concomitant]

REACTIONS (3)
  - CONSTIPATION [None]
  - CHROMATURIA [None]
  - DYSURIA [None]
